FAERS Safety Report 7988663-5 (Version None)
Quarter: 2011Q4

REPORT INFORMATION
  Report Type: 
  Country: None (occurrence: None)
  Receive Date: 20111218
  Receipt Date: 20111205
  Transmission Date: 20120403
  Serious: Yes (Hospitalization, Other)
  Sender: FDA-Public Use
  Company Number: US-ELI_LILLY_AND_COMPANY-US201112002679

PATIENT
  Age: 80 Year
  Sex: Male

DRUGS (4)
  1. AMLODIPINE [Concomitant]
  2. OLANZAPINE [Suspect]
  3. ASPIRIN [Concomitant]
  4. INSULIN [Concomitant]

REACTIONS (4)
  - BRADYCARDIA [None]
  - HYPOTHERMIA [None]
  - HYPOKALAEMIA [None]
  - RESPIRATORY DISTRESS [None]
